FAERS Safety Report 17556422 (Version 1)
Quarter: 2020Q1

REPORT INFORMATION
  Report Type: Spontaneous
  Country: FR (occurrence: FR)
  Receive Date: 20200318
  Receipt Date: 20200318
  Transmission Date: 20200409
  Serious: Yes (Other)
  Sender: FDA-Public Use
  Company Number: FR-PFIZER INC-2020113930

PATIENT
  Age: 29 Year
  Sex: Male

DRUGS (1)
  1. LYRICA [Suspect]
     Active Substance: PREGABALIN
     Dosage: 1.5 G, 1X/DAY
     Route: 045
     Dates: start: 201903, end: 202001

REACTIONS (5)
  - Theft [Recovered/Resolved]
  - Sedation [Recovering/Resolving]
  - Dependence [Recovering/Resolving]
  - Euphoric mood [Recovering/Resolving]
  - Drug abuse [Recovering/Resolving]

NARRATIVE: CASE EVENT DATE: 201903
